FAERS Safety Report 7814699-0 (Version None)
Quarter: 2011Q4

REPORT INFORMATION
  Report Type: 
  Country: None (occurrence: None)
  Receive Date: 20111013
  Receipt Date: 20111013
  Transmission Date: 20120403
  Serious: Yes (Other)
  Sender: FDA-Public Use
  Company Number: None

PATIENT
  Sex: Female
  Weight: 79.3795 kg

DRUGS (2)
  1. TOPAMAX [Suspect]
     Indication: AFFECTIVE DISORDER
     Dosage: 100 MG BID P.O.
     Route: 048
     Dates: start: 20090201, end: 20110901
  2. TOPAMAX [Suspect]
     Indication: HEADACHE
     Dosage: 100 MG BID P.O.
     Route: 048
     Dates: start: 20090201, end: 20110901

REACTIONS (4)
  - NAUSEA [None]
  - AFFECTIVE DISORDER [None]
  - AGITATION [None]
  - CONDITION AGGRAVATED [None]
